FAERS Safety Report 9019711 (Version 21)
Quarter: 2018Q3

REPORT INFORMATION
  Report Type: Report from Study
  Country: CA (occurrence: CA)
  Receive Date: 20130118
  Receipt Date: 20180920
  Transmission Date: 20181010
  Serious: Yes (Hospitalization, Other)
  Sender: FDA-Public Use
  Company Number: CA-ROCHE-1151334

PATIENT
  Age: 49 Year
  Sex: Male
  Weight: 58 kg

DRUGS (15)
  1. METHOTREXATE. [Concomitant]
     Active Substance: METHOTREXATE
  2. OXYCONTIN [Concomitant]
     Active Substance: OXYCODONE HYDROCHLORIDE
  3. ACTEMRA [Suspect]
     Active Substance: TOCILIZUMAB
     Route: 042
     Dates: start: 20140501
  4. ACTEMRA [Suspect]
     Active Substance: TOCILIZUMAB
     Route: 042
     Dates: start: 20140727
  5. ACTEMRA [Suspect]
     Active Substance: TOCILIZUMAB
     Route: 042
     Dates: start: 20150108
  6. ACTEMRA [Suspect]
     Active Substance: TOCILIZUMAB
     Dosage: ON HOLD
     Route: 042
     Dates: start: 20161214
  7. ACTEMRA [Suspect]
     Active Substance: TOCILIZUMAB
     Route: 042
     Dates: start: 20101124
  8. ACTEMRA [Suspect]
     Active Substance: TOCILIZUMAB
     Route: 042
     Dates: start: 20131211
  9. ACTEMRA [Suspect]
     Active Substance: TOCILIZUMAB
     Route: 042
     Dates: start: 20141211
  10. PREDNISONE. [Concomitant]
     Active Substance: PREDNISONE
  11. ACTEMRA [Suspect]
     Active Substance: TOCILIZUMAB
     Route: 042
     Dates: start: 20150305
  12. ACTEMRA [Suspect]
     Active Substance: TOCILIZUMAB
     Indication: RHEUMATOID ARTHRITIS
     Route: 042
     Dates: start: 20100929
  13. ACTEMRA [Suspect]
     Active Substance: TOCILIZUMAB
     Route: 042
     Dates: start: 20141016
  14. ACTEMRA [Suspect]
     Active Substance: TOCILIZUMAB
     Route: 042
     Dates: start: 20150205
  15. ACTEMRA [Suspect]
     Active Substance: TOCILIZUMAB
     Route: 042
     Dates: start: 20150528

REACTIONS (20)
  - Blood pressure increased [Unknown]
  - Pyrexia [Unknown]
  - Blood pressure systolic increased [Unknown]
  - Blood pressure fluctuation [Unknown]
  - Intercepted medication error [Unknown]
  - Weight decreased [Unknown]
  - Heart rate increased [Unknown]
  - Heart rate decreased [Unknown]
  - Ankle arthroplasty [Recovered/Resolved]
  - Weight fluctuation [Unknown]
  - Weight increased [Unknown]
  - Weight decreased [Not Recovered/Not Resolved]
  - Blood pressure systolic decreased [Unknown]
  - Infusion related reaction [Unknown]
  - Fracture [Unknown]
  - Surgical failure [Unknown]
  - Back pain [Unknown]
  - Burning sensation [Recovered/Resolved]
  - Blood pressure fluctuation [Unknown]
  - Heart rate increased [Unknown]

NARRATIVE: CASE EVENT DATE: 20121023
